FAERS Safety Report 15813204 (Version 2)
Quarter: 2019Q4

REPORT INFORMATION
  Report Type: Spontaneous
  Country: US (occurrence: US)
  Receive Date: 20190111
  Receipt Date: 20191009
  Transmission Date: 20200122
  Serious: No
  Sender: FDA-Public Use
  Company Number: US-SA-2019SA007722

PATIENT
  Age: 50 Year
  Sex: Female
  Weight: 81.63 kg

DRUGS (13)
  1. AUBAGIO [Suspect]
     Active Substance: TERIFLUNOMIDE
     Indication: MULTIPLE SCLEROSIS
     Dosage: 14 MG, QD
     Route: 048
     Dates: start: 201812
  2. LISINOPRIL. [Concomitant]
     Active Substance: LISINOPRIL
  3. DICLOFENAC [Concomitant]
     Active Substance: DICLOFENAC
  4. ATORVASTATIN [Concomitant]
     Active Substance: ATORVASTATIN
  5. BETAMETHASONE. [Concomitant]
     Active Substance: BETAMETHASONE
  6. CALCIPOTRIENE. [Concomitant]
     Active Substance: CALCIPOTRIENE
  7. CETRIZINE [Concomitant]
     Active Substance: CETIRIZINE HYDROCHLORIDE
  8. ALL DAY ALLERGY [Concomitant]
     Active Substance: CETIRIZINE HYDROCHLORIDE
  9. BIOTIN [Concomitant]
     Active Substance: BIOTIN
  10. ALKA SELTZER [ACETYLSALICYLIC ACID] [Concomitant]
  11. HCTZ [Concomitant]
     Active Substance: HYDROCHLOROTHIAZIDE
  12. IBUPROFEN. [Concomitant]
     Active Substance: IBUPROFEN
  13. ASPIRIN [ACETYLSALICYLIC ACID] [Concomitant]
     Active Substance: ASPIRIN

REACTIONS (3)
  - Nausea [Recovered/Resolved]
  - Stress [Unknown]
  - Fatigue [Unknown]
